FAERS Safety Report 15327130 (Version 1)
Quarter: 2018Q3

REPORT INFORMATION
  Report Type: Spontaneous
  Country: US (occurrence: US)
  Receive Date: 20180828
  Receipt Date: 20180828
  Transmission Date: 20181010
  Serious: No
  Sender: FDA-Public Use
  Company Number: US-PFIZER INC-2018343815

PATIENT

DRUGS (1)
  1. CHANTIX [Suspect]
     Active Substance: VARENICLINE TARTRATE
     Dosage: UNK

REACTIONS (8)
  - Depression [Unknown]
  - Agitation [Unknown]
  - Anxiety [Unknown]
  - Panic reaction [Unknown]
  - Feeling abnormal [Unknown]
  - Rash [Not Recovered/Not Resolved]
  - Nightmare [Unknown]
  - Aggression [Unknown]
